FAERS Safety Report 8595445-2 (Version None)
Quarter: 2012Q3

REPORT INFORMATION
  Report Type: 
  Country: None (occurrence: None)
  Receive Date: 20120815
  Receipt Date: 20120723
  Transmission Date: 20120928
  Serious: No
  Sender: FDA-Public Use
  Company Number: US-BRISTOL-MYERS SQUIBB COMPANY-16797649

PATIENT
  Sex: Female

DRUGS (2)
  1. VICTOZA [Suspect]
  2. ONGLYZA [Suspect]

REACTIONS (1)
  - BLOOD GLUCOSE DECREASED [None]
